FAERS Safety Report 4348336-7 (Version None)
Quarter: 2004Q2

REPORT INFORMATION
  Report Type: 
  Country: None (occurrence: None)
  Receive Date: 20040422
  Receipt Date: 20040416
  Transmission Date: 20050107
  Serious: Yes (Other)
  Sender: FDA-Public Use
  Company Number: 2004-04-0753

PATIENT
  Age: 11 Year
  Sex: Female

DRUGS (1)
  1. AERIUS (DESLORATADINE) ^LIKE CLARINEX^ [Suspect]

REACTIONS (1)
  - DIABETES MELLITUS [None]
